FAERS Safety Report 8265465-6 (Version None)
Quarter: 2012Q2

REPORT INFORMATION
  Report Type: 
  Country: None (occurrence: None)
  Receive Date: 20120404
  Receipt Date: 20120326
  Transmission Date: 20120825
  Serious: Yes (Hospitalization, Disabling)
  Sender: FDA-Public Use
  Company Number: TPA2012A01578

PATIENT
  Age: 60 Year
  Sex: Male
  Weight: 88.27 kg

DRUGS (5)
  1. PRISTIQ [Concomitant]
  2. ACTOPLUS MET [Suspect]
     Indication: TYPE 2 DIABETES MELLITUS
     Dosage: 15 MG/500 MG QD, PER ORAL
     Route: 048
     Dates: start: 20110501
  3. TRICOR [Concomitant]
  4. TRADJENTA (DRUG USED IN DIABETES) [Concomitant]
  5. LOTREL [Concomitant]

REACTIONS (2)
  - TONGUE NEOPLASM MALIGNANT STAGE UNSPECIFIED [None]
  - METASTASES TO LYMPH NODES [None]
